FAERS Safety Report 9267473 (Version 2)
Quarter: 2013Q3

REPORT INFORMATION
  Report Type: Spontaneous
  Country: US (occurrence: US)
  Receive Date: 20130502
  Receipt Date: 20130703
  Transmission Date: 20140515
  Serious: No
  Sender: FDA-Public Use
  Company Number: US-BAYER-2013-052719

PATIENT
  Sex: Female

DRUGS (2)
  1. AVELOX [Suspect]
     Indication: MYCOPLASMA INFECTION
     Dosage: UNK
     Dates: start: 201012
  2. AVELOX [Suspect]
     Indication: MYCOPLASMA INFECTION
     Dosage: UNK
     Dates: start: 2011

REACTIONS (8)
  - Muscle rupture [None]
  - Stress fracture [None]
  - Meniscus injury [Not Recovered/Not Resolved]
  - Tendonitis [Not Recovered/Not Resolved]
  - Arthralgia [None]
  - Gait disturbance [None]
  - Fracture [None]
  - Meniscus operation [None]
